FAERS Safety Report 5312578-4 (Version None)
Quarter: 2007Q2

REPORT INFORMATION
  Report Type: 
  Country: None (occurrence: None)
  Receive Date: 20070430
  Receipt Date: 20070104
  Transmission Date: 20071010
  Serious: No
  Sender: FDA-Public Use
  Company Number: 2007UW00229

PATIENT
  Age: 72 Year
  Sex: Male
  Weight: 72.6 kg

DRUGS (8)
  1. NEXIUM [Suspect]
     Indication: GASTROOESOPHAGEAL REFLUX DISEASE
     Route: 048
  2. NEXIUM [Suspect]
     Indication: OESOPHAGEAL STENOSIS
     Route: 048
  3. CELEBREX [Concomitant]
  4. SAW PALMETTO [Concomitant]
  5. ALPRAZOLAM [Concomitant]
  6. LOVASTATIN [Concomitant]
  7. ONE A DAY VITAMIN [Concomitant]
  8. 2 BEERS [Concomitant]

REACTIONS (4)
  - ARTHRITIS [None]
  - CHOLELITHIASIS [None]
  - NECK PAIN [None]
  - RESORPTION BONE INCREASED [None]
